FAERS Safety Report 12154061 (Version 1)
Quarter: 2016Q1

REPORT INFORMATION
  Report Type: Spontaneous
  Country: US (occurrence: None)
  Receive Date: 20160304
  Receipt Date: 20160304
  Transmission Date: 20160526
  Serious: Yes (Other)
  Sender: FDA-Public Use
  Company Number: None

PATIENT
  Age: 68 Year
  Sex: Male
  Weight: 81.65 kg

DRUGS (9)
  1. HYDROCODENE [Concomitant]
  2. COMBIGAN [Concomitant]
     Active Substance: BRIMONIDINE TARTRATE\TIMOLOL MALEATE
  3. LIDOCAINE PATCH 5% MYLAN [Suspect]
     Active Substance: LIDOCAINE
     Indication: LUMBAR RADICULOPATHY
     Dosage: 140 MG  1 TO 3 PATCHES EVERY 12 HOURS ON THE SKIN
     Dates: start: 20160107, end: 20160124
  4. FANASTERIDE [Concomitant]
  5. OCUVITE [Concomitant]
     Active Substance: VITAMINS
  6. XALATAN [Concomitant]
     Active Substance: LATANOPROST
  7. LIDOCAINE PATCH 5% MYLAN [Suspect]
     Active Substance: LIDOCAINE
     Indication: PAIN
     Dosage: 140 MG  1 TO 3 PATCHES EVERY 12 HOURS ON THE SKIN
     Dates: start: 20160107, end: 20160124
  8. CITRACAL+D3 [Concomitant]
  9. LIDOCAINE PATCH 5% MYLAN [Suspect]
     Active Substance: LIDOCAINE
     Indication: SPINAL DISORDER
     Dosage: 140 MG  1 TO 3 PATCHES EVERY 12 HOURS ON THE SKIN
     Dates: start: 20160107, end: 20160124

REACTIONS (5)
  - Dermatitis [None]
  - Application site irritation [None]
  - Product substitution issue [None]
  - Application site erythema [None]
  - Drug ineffective [None]

NARRATIVE: CASE EVENT DATE: 20160110
